FAERS Safety Report 25441880 (Version 1)
Quarter: 2025Q2

REPORT INFORMATION
  Report Type: Spontaneous
  Country: MX (occurrence: MX)
  Receive Date: 20250616
  Receipt Date: 20250616
  Transmission Date: 20250716
  Serious: Yes (Hospitalization)
  Sender: BAUSCH AND LOMB
  Company Number: MX-MLMSERVICE-20250604-PI532779-00117-1

PATIENT
  Age: 24 Year
  Sex: Male

DRUGS (4)
  1. DEXAMETHASONE [Suspect]
     Active Substance: DEXAMETHASONE
     Indication: Muscular weakness
     Route: 030
  2. DEXAMETHASONE [Suspect]
     Active Substance: DEXAMETHASONE
     Indication: Pain in extremity
  3. DICLOFENAC [Concomitant]
     Active Substance: DICLOFENAC
     Indication: Muscular weakness
     Route: 030
  4. DICLOFENAC [Concomitant]
     Active Substance: DICLOFENAC
     Indication: Pain in extremity

REACTIONS (1)
  - Thyrotoxic periodic paralysis [Recovered/Resolved]
